FAERS Safety Report 20258033 (Version 2)
Quarter: 2022Q1

REPORT INFORMATION
  Report Type: Report from Study
  Country: AT (occurrence: None)
  Receive Date: 20211230
  Receipt Date: 20220110
  Transmission Date: 20220423
  Serious: Yes (Death, Hospitalization)
  Sender: FDA-Public Use
  Company Number: AT-Merck Healthcare KGaA-9284142

PATIENT
  Age: 80 Year
  Sex: Male
  Weight: 100 kg

DRUGS (2)
  1. TEPOTINIB [Suspect]
     Active Substance: TEPOTINIB
     Indication: Product used for unknown indication
     Dates: start: 20211023
  2. TEPOTINIB [Suspect]
     Active Substance: TEPOTINIB
     Dates: start: 20211105, end: 20211105

REACTIONS (3)
  - Gastric haemorrhage [Fatal]
  - Renal failure [Recovered/Resolved]
  - Oedema peripheral [Recovered/Resolved]

NARRATIVE: CASE EVENT DATE: 20211105
